FAERS Safety Report 7152787-5 (Version None)
Quarter: 2010Q4

REPORT INFORMATION
  Report Type: 
  Country: None (occurrence: None)
  Receive Date: 20101123
  Receipt Date: 20101109
  Transmission Date: 20110411
  Serious: Yes (Death, Other)
  Sender: FDA-Public Use
  Company Number: 2010004706

PATIENT
  Age: 60 Year
  Sex: Female

DRUGS (1)
  1. TARCEVA [Suspect]
     Indication: LUNG SQUAMOUS CELL CARCINOMA STAGE UNSPECIFIED
     Dosage: (150 MG, 1 X PER 1 DAY / 150 MG), ORAL
     Route: 048
     Dates: start: 20101020

REACTIONS (2)
  - RESPIRATORY FAILURE [None]
  - SINUS TACHYCARDIA [None]
